FAERS Safety Report 10984937 (Version 2)
Quarter: 2015Q2

REPORT INFORMATION
  Report Type: Spontaneous
  Country: CH (occurrence: CH)
  Receive Date: 20150403
  Receipt Date: 20150413
  Transmission Date: 20150821
  Serious: Yes (Death, Hospitalization)
  Sender: FDA-Public Use
  Company Number: CH-ASTRAZENECA-2015SE31147

PATIENT
  Age: 25178 Day
  Sex: Female

DRUGS (24)
  1. ASPIRIN CARDIO [Suspect]
     Active Substance: ASPIRIN
     Route: 048
  2. AURORIX [Suspect]
     Active Substance: MOCLOBEMIDE
     Route: 065
  3. VI-DE 3 [Concomitant]
  4. SEROQUEL [Suspect]
     Active Substance: QUETIAPINE FUMARATE
     Route: 048
  5. VITANGO [Concomitant]
  6. MOTILIUM LINGUAL [Concomitant]
  7. REDORMIN [Concomitant]
  8. ALUCOL [Concomitant]
     Active Substance: ALUMINUM HYDROXIDE\MAGNESIUM HYDROXIDE
  9. SELIPRAN [Suspect]
     Active Substance: PRAVASTATIN SODIUM
     Route: 065
  10. PANTOZOL [Suspect]
     Active Substance: PANTOPRAZOLE SODIUM
     Route: 065
  11. MOVICOL [Concomitant]
     Active Substance: POLYETHYLENE GLYCOL 3350\POTASSIUM CHLORIDE\SODIUM BICARBONATE\SODIUM CHLORIDE
  12. SERESTA [Concomitant]
     Active Substance: OXAZEPAM
     Dosage: 15MG 1 TABLET/24H
  13. LYRICA [Suspect]
     Active Substance: PREGABALIN
     Route: 065
  14. DAFALGAN [Suspect]
     Active Substance: ACETAMINOPHEN
     Route: 065
  15. DUROGESIC [Concomitant]
     Active Substance: FENTANYL
  16. B12 ANKERMANN [Concomitant]
  17. LYRICA [Suspect]
     Active Substance: PREGABALIN
     Route: 065
  18. IMOVANE [Concomitant]
     Active Substance: ZOPICLONE
  19. ACIDUM FOLICUM [Concomitant]
     Active Substance: FOLIC ACID
  20. METOJECT [Suspect]
     Active Substance: METHOTREXATE SODIUM
     Indication: RHEUMATOID ARTHRITIS
     Dosage: 10MG/0.2ML S.C. 1 X PER WEEK (ON THURSDAY)
     Route: 030
     Dates: end: 20150122
  21. NOVALGIN [Suspect]
     Active Substance: METAMIZOLE SODIUM
     Route: 065
  22. BRUFEN [Suspect]
     Active Substance: IBUPROFEN
     Indication: PAIN
     Route: 065
  23. EUTHYROX [Concomitant]
     Active Substance: LEVOTHYROXINE SODIUM
  24. ARKOCAP [Concomitant]
     Dosage: 2 TABLETS/24H

REACTIONS (4)
  - Sepsis [Fatal]
  - Immunosuppression [Fatal]
  - Pancytopenia [Fatal]
  - Herpes simplex [Unknown]

NARRATIVE: CASE EVENT DATE: 20150123
